FAERS Safety Report 14048582 (Version 7)
Quarter: 2019Q3

REPORT INFORMATION
  Report Type: Spontaneous
  Country: PT (occurrence: CA)
  Receive Date: 20171005
  Receipt Date: 20190809
  Transmission Date: 20191004
  Serious: Yes (Life-Threatening, Hospitalization, Other)
  Sender: FDA-Public Use
  Company Number: PT-SUNOVION-2017SUN004295

PATIENT
  Age: 18 Year
  Sex: Female

DRUGS (6)
  1. APTIOM [Suspect]
     Active Substance: ESLICARBAZEPINE ACETATE
     Dosage: 800 MG
     Route: 048
  2. COCODAMOL [Concomitant]
     Active Substance: ACETAMINOPHEN\CODEINE PHOSPHATE
     Indication: MIGRAINE
     Route: 048
  3. TYLENOL [Concomitant]
     Active Substance: ACETAMINOPHEN
  4. MARIJUANA [Concomitant]
     Active Substance: CANNABIS SATIVA SUBSP. INDICA TOP
  5. APTIOM [Suspect]
     Active Substance: ESLICARBAZEPINE ACETATE
     Indication: PRODUCT USED FOR UNKNOWN INDICATION
     Dosage: 5600 MG, SINGLE DOSE
     Route: 048
  6. PAROXETINE. [Suspect]
     Active Substance: PAROXETINE
     Indication: DEPRESSION
     Dosage: 20 MG, QD

REACTIONS (19)
  - Ventricular tachycardia [Recovering/Resolving]
  - Dysarthria [Recovering/Resolving]
  - Hyperglycaemia [Recovering/Resolving]
  - Somnolence [Unknown]
  - Generalised tonic-clonic seizure [Recovering/Resolving]
  - Tachycardia [Recovering/Resolving]
  - Hypertonia [Recovering/Resolving]
  - Hyperreflexia [Recovering/Resolving]
  - Cardiac arrest [Recovering/Resolving]
  - Depressed level of consciousness [Recovering/Resolving]
  - Apnoea [Not Recovered/Not Resolved]
  - Restlessness [Recovering/Resolving]
  - Intentional overdose [Recovering/Resolving]
  - Serotonin syndrome [Recovered/Resolved]
  - Chills [Recovering/Resolving]
  - Electrocardiogram QT prolonged [Recovering/Resolving]
  - Confusional state [Recovering/Resolving]
  - Mydriasis [Recovering/Resolving]
  - Prescription drug used without a prescription [Unknown]
